FAERS Safety Report 9563286 (Version 1)
Quarter: 2013Q3

REPORT INFORMATION
  Report Type: Report from Study
  Country: GB (occurrence: GB)
  Receive Date: 20130927
  Receipt Date: 20130927
  Transmission Date: 20140515
  Serious: Yes (Hospitalization)
  Sender: FDA-Public Use
  Company Number: GB-ROCHE-1281779

PATIENT
  Sex: Female
  Weight: 57 kg

DRUGS (2)
  1. RITUXIMAB [Suspect]
     Indication: RHEUMATOID ARTHRITIS
     Dosage: MOST RECENT DOSE PRIOR TO SAE ON 04/APR/2013.
     Route: 065
     Dates: start: 20130321
  2. METHOTREXATE [Concomitant]

REACTIONS (1)
  - Humerus fracture [Unknown]
